FAERS Safety Report 19461090 (Version 6)
Quarter: 2022Q2

REPORT INFORMATION
  Report Type: Other
  Country: JP (occurrence: JP)
  Receive Date: 20210625
  Receipt Date: 20220602
  Transmission Date: 20220721
  Serious: Yes (Death, Hospitalization, Other)
  Sender: FDA-Public Use
  Company Number: JP-CHUGAI-2021000309

PATIENT
  Age: 63 Year
  Sex: Male

DRUGS (3)
  1. SATRALIZUMAB [Suspect]
     Active Substance: SATRALIZUMAB
     Indication: Neuromyelitis optica spectrum disorder
     Route: 058
     Dates: start: 20201225, end: 20210121
  2. SATRALIZUMAB [Suspect]
     Active Substance: SATRALIZUMAB
     Route: 058
     Dates: start: 20210319, end: 20210416
  3. PREDONINE [Suspect]
     Active Substance: PREDNISOLONE
     Indication: Neuromyelitis optica spectrum disorder
     Route: 048
     Dates: start: 20201225, end: 20210601

REACTIONS (6)
  - Gastrointestinal haemorrhage [Fatal]
  - Pneumonia aspiration [Recovered/Resolved]
  - Spinal osteoarthritis [Recovered/Resolved]
  - Renal impairment [Not Recovered/Not Resolved]
  - Infection [Unknown]
  - Urinary tract infection [Recovered/Resolved]

NARRATIVE: CASE EVENT DATE: 20210101
